FAERS Safety Report 6476191-8 (Version None)
Quarter: 2009Q4

REPORT INFORMATION
  Report Type: 
  Country: None (occurrence: None)
  Receive Date: 20091206
  Receipt Date: 20090611
  Transmission Date: 20100525
  Serious: No
  Sender: FDA-Public Use
  Company Number: US-ALLERGAN-0906924US

PATIENT
  Sex: Female
  Weight: 68.027 kg

DRUGS (1)
  1. ELESTAT [Suspect]
     Indication: DRUG USE FOR UNKNOWN INDICATION
     Dosage: UNK, BID
     Route: 047

REACTIONS (1)
  - DRUG INEFFECTIVE [None]
